FAERS Safety Report 9990358 (Version 1)
Quarter: 2014Q1

REPORT INFORMATION
  Report Type: Spontaneous
  Country: US (occurrence: US)
  Receive Date: 20140310
  Receipt Date: 20140310
  Transmission Date: 20141002
  Serious: No
  Sender: FDA-Public Use
  Company Number: US-ABBVIE-13P-163-1139447-00

PATIENT
  Age: 34 Year
  Sex: Female
  Weight: 55.84 kg

DRUGS (9)
  1. HUMIRA [Suspect]
     Indication: CROHN^S DISEASE
     Route: 058
     Dates: start: 20130104
  2. XANAX [Concomitant]
     Indication: PRODUCT USED FOR UNKNOWN INDICATION
  3. PROZAC [Concomitant]
     Indication: PRODUCT USED FOR UNKNOWN INDICATION
  4. DIFFERIN [Concomitant]
     Indication: PRODUCT USED FOR UNKNOWN INDICATION
  5. NIZORAL [Concomitant]
     Indication: PRODUCT USED FOR UNKNOWN INDICATION
  6. SULFACETAMIDE SODIUM/SULFUR [Concomitant]
     Indication: PRODUCT USED FOR UNKNOWN INDICATION
  7. KENALOG [Concomitant]
     Indication: PRODUCT USED FOR UNKNOWN INDICATION
  8. LIDEX [Concomitant]
     Indication: PRODUCT USED FOR UNKNOWN INDICATION
     Route: 061
  9. ESTRADIOL [Concomitant]
     Indication: CONTRACEPTION

REACTIONS (3)
  - Pustular psoriasis [Recovering/Resolving]
  - Rash [Recovering/Resolving]
  - Rash [Recovering/Resolving]
